FAERS Safety Report 21817261 (Version 3)
Quarter: 2023Q1

REPORT INFORMATION
  Report Type: Report from Study
  Country: CO (occurrence: CO)
  Receive Date: 20230104
  Receipt Date: 20230315
  Transmission Date: 20230418
  Serious: Yes (Other)
  Sender: FDA-Public Use
  Company Number: CO-002147023-NVSC2022CO245479

PATIENT
  Sex: Female

DRUGS (4)
  1. BROLUCIZUMAB [Suspect]
     Active Substance: BROLUCIZUMAB
     Indication: Age-related macular degeneration
     Dosage: QMO (ON RIGHT EYE)
     Route: 047
     Dates: start: 202208
  2. BROLUCIZUMAB [Suspect]
     Active Substance: BROLUCIZUMAB
     Dosage: UNK UNK, QMO
     Route: 047
  3. LOSARTAN [Suspect]
     Active Substance: LOSARTAN
     Indication: Hypertension
     Dosage: 50 MG, Q12H (STARTED 3 YEARS AGO)
     Route: 048
  4. INSULIN NOS [Concomitant]
     Active Substance: INSULIN NOS
     Indication: Diabetes mellitus
     Dosage: UNK, QD (STARTED BEFORE 10 YEARS)
     Route: 058

REACTIONS (9)
  - Blindness [Not Recovered/Not Resolved]
  - Vitreous floaters [Recovered/Resolved]
  - Eye pain [Unknown]
  - Visual impairment [Unknown]
  - Influenza [Unknown]
  - Cough [Unknown]
  - Muscle spasms [Unknown]
  - Umbilical hernia [Unknown]
  - Abdominal pain [Unknown]
